FAERS Safety Report 7381897-2 (Version None)
Quarter: 2011Q1

REPORT INFORMATION
  Report Type: 
  Country: None (occurrence: None)
  Receive Date: 20110329
  Receipt Date: 20110321
  Transmission Date: 20110831
  Serious: Yes (Hospitalization)
  Sender: FDA-Public Use
  Company Number: US-GILEAD-2011-0037198

PATIENT
  Sex: Female

DRUGS (2)
  1. LETAIRIS [Suspect]
     Route: 048
     Dates: start: 20110228
  2. LETAIRIS [Suspect]
     Indication: PULMONARY HYPERTENSION
     Route: 048
     Dates: start: 20110114, end: 20110218

REACTIONS (1)
  - BLOOD PRESSURE DECREASED [None]
